FAERS Safety Report 5712773-6 (Version None)
Quarter: 2008Q2

REPORT INFORMATION
  Report Type: 
  Country: None (occurrence: None)
  Receive Date: 20080422
  Receipt Date: 20080411
  Transmission Date: 20081010
  Serious: Yes (Hospitalization, Congenital Anomaly)
  Sender: FDA-Public Use
  Company Number: JP-NOVOPROD-273440

PATIENT
  Sex: Male
  Weight: 63 kg

DRUGS (9)
  1. NOVORAPID 30 MIX CHU FLEXPEN [Suspect]
     Indication: TYPE 2 DIABETES MELLITUS
     Dosage: 12+0+10  IU, QD
     Route: 058
     Dates: start: 20080306, end: 20080312
  2. NOVOLIN N [Suspect]
     Indication: TYPE 2 DIABETES MELLITUS
     Dosage: 6 IU, QD
     Route: 058
     Dates: start: 20080202, end: 20080305
  3. GASMOTIN [Suspect]
     Route: 048
     Dates: start: 20080225, end: 20080306
  4. NOVORAPID CHU [Concomitant]
     Indication: TYPE 2 DIABETES MELLITUS
     Dosage: 8+6+4  IU, QD
     Route: 058
     Dates: start: 20080223, end: 20080306
  5. NOVORAPID CHU [Concomitant]
     Dosage: 6+6+4  IU, QD
     Dates: start: 20080319
  6. EUGLUCON [Concomitant]
     Route: 048
     Dates: end: 20080225
  7. DAONIL [Concomitant]
     Route: 048
     Dates: end: 20080225
  8. ASPIRIN [Concomitant]
     Dosage: 100 MG, UNK
     Route: 048
     Dates: start: 20071101
  9. LEVEMIR [Concomitant]
     Indication: TYPE 2 DIABETES MELLITUS
     Dosage: 6 IU, QD
     Dates: start: 20080319

REACTIONS (4)
  - ALANINE AMINOTRANSFERASE INCREASED [None]
  - ASPARTATE AMINOTRANSFERASE INCREASED [None]
  - DRUG HYPERSENSITIVITY [None]
  - HEPATIC FUNCTION ABNORMAL [None]
